FAERS Safety Report 11819475 (Version 1)
Quarter: 2015Q4

REPORT INFORMATION
  Report Type: Spontaneous
  Country: US (occurrence: None)
  Receive Date: 20151209
  Receipt Date: 20151209
  Transmission Date: 20160305
  Serious: Yes (Disabling)
  Sender: FDA-Public Use
  Company Number: None

PATIENT
  Age: 72 Year
  Sex: Female
  Weight: 81.65 kg

DRUGS (11)
  1. ROBAXIN [Concomitant]
     Active Substance: METHOCARBAMOL
  2. AMBIEN [Concomitant]
     Active Substance: ZOLPIDEM TARTRATE
  3. DILTIAZEM [Concomitant]
     Active Substance: DILTIAZEM
  4. FEMARA [Concomitant]
     Active Substance: LETROZOLE
  5. DULCOLAX NOS [Concomitant]
     Active Substance: BISACODYL OR DOCUSATE SODIUM
  6. XGEVA [Suspect]
     Active Substance: DENOSUMAB
  7. FOLIC ACID. [Concomitant]
     Active Substance: FOLIC ACID
  8. VITAMIN D [Concomitant]
     Active Substance: CHOLECALCIFEROL
  9. DENOSUMAB [Suspect]
     Active Substance: DENOSUMAB
     Indication: PROPHYLAXIS
     Dates: start: 20150910
  10. PROLIA [Suspect]
     Active Substance: DENOSUMAB
  11. KLOR-CON [Concomitant]
     Active Substance: POTASSIUM CHLORIDE

REACTIONS (1)
  - Arthralgia [None]

NARRATIVE: CASE EVENT DATE: 20150917
